FAERS Safety Report 4726960-7 (Version None)
Quarter: 2005Q3

REPORT INFORMATION
  Report Type: 
  Country: None (occurrence: None)
  Receive Date: 20050726
  Receipt Date: 20050726
  Transmission Date: 20060218
  Serious: Yes (Hospitalization)
  Sender: FDA-Public Use
  Company Number: None

PATIENT
  Age: 59 Year
  Sex: Female

DRUGS (23)
  1. ENALAPRIL [Suspect]
     Indication: HYPERTENSION
     Dosage: 20MG PO BID
     Route: 048
     Dates: start: 20040812, end: 20050608
  2. SPIRONOLACTONE [Suspect]
     Indication: HYPERTENSION
     Dosage: 25MG PO BID
     Route: 048
     Dates: start: 20050225, end: 20050608
  3. ATENOLOL [Concomitant]
  4. CITALOPRAM HYDROBROMIDE [Concomitant]
  5. CLOPIDOGREL BISULFATE [Concomitant]
  6. DARBEPOETIN ALFA [Concomitant]
  7. ENALAPRIL MALEATE [Concomitant]
  8. FERROUS SULFATE TAB [Concomitant]
  9. FUROSEMIDE [Concomitant]
  10. GABAPENTIN [Concomitant]
  11. NOVOLIN 70/30 [Concomitant]
  12. HUMULIN R [Concomitant]
  13. IRBESARTAN [Concomitant]
  14. METOCLOPRAMIDE HCL [Concomitant]
  15. OMEPRAZOLE [Concomitant]
  16. ONDANSETRON HCL [Concomitant]
  17. POTASSIUM CHLORIDE [Concomitant]
  18. PROCHLORPERAZINE [Concomitant]
  19. PYRIDOXINE HCL [Concomitant]
  20. SENNA [Concomitant]
  21. SPIRONOLACTONE [Concomitant]
  22. TAMSULOSIN [Concomitant]
  23. TRAZODONE HCL [Concomitant]

REACTIONS (2)
  - BLOOD CREATININE INCREASED [None]
  - HYPERKALAEMIA [None]
